FAERS Safety Report 9204584 (Version 1)
Quarter: 2013Q1

REPORT INFORMATION
  Report Type: Spontaneous
  Country: US (occurrence: None)
  Receive Date: 20120709
  Receipt Date: 20120709
  Transmission Date: 20140127
  Serious: Yes (Disabling, Other)
  Sender: FDA-Public Use
  Company Number: PHEH2011US009774

PATIENT
  Age: 66 Year
  Sex: Male
  Weight: 160 kg

DRUGS (5)
  1. GLEEVEC  (IMATINIB) [Suspect]
     Indication: CHRONIC MYELOID LEUKAEMIA
     Route: 048
     Dates: start: 20071204
  2. LUNESTA (ESZOPICLONE) [Concomitant]
  3. XANAX (ALPRAZOLAM) TABLET [Concomitant]
  4. LOTENSIN (BENEZEPRIL HYDROCHLORIDE) TABLET [Concomitant]
  5. RELAFEN (NABUMETONE) TABLET [Concomitant]

REACTIONS (3)
  - Arthralgia [None]
  - Chronic myeloid leukaemia [None]
  - Neoplasm malignant [None]
